FAERS Safety Report 9312774 (Version 3)
Quarter: 2013Q2

REPORT INFORMATION
  Report Type: Spontaneous
  Country: LT (occurrence: LT)
  Receive Date: 20130528
  Receipt Date: 20130621
  Transmission Date: 20140414
  Serious: No
  Sender: FDA-Public Use
  Company Number: FI-009507513-1305LTU013087

PATIENT
  Age: 85 Year
  Sex: Female

DRUGS (5)
  1. TAFLOTAN [Suspect]
     Indication: GLAUCOMA
     Dosage: 2 GTT, QD
     Route: 047
     Dates: start: 20130508, end: 20130510
  2. OPTIMOL [Concomitant]
  3. AZOPT [Concomitant]
  4. OPTIVE [Concomitant]
  5. HYAL [Concomitant]

REACTIONS (2)
  - Product contamination microbial [Recovering/Resolving]
  - Conjunctivitis bacterial [Recovering/Resolving]
